FAERS Safety Report 8012368-8 (Version None)
Quarter: 2011Q4

REPORT INFORMATION
  Report Type: 
  Country: None (occurrence: None)
  Receive Date: 20111228
  Receipt Date: 20111222
  Transmission Date: 20120403
  Serious: Yes (Other)
  Sender: FDA-Public Use
  Company Number: US-AMGEN-USASP2010001629

PATIENT
  Age: 36 Year
  Sex: Female

DRUGS (4)
  1. ENBREL [Suspect]
     Indication: ANKYLOSING SPONDYLITIS
     Dosage: 50 MG, QWK
     Dates: start: 20080926, end: 20101018
  2. PREDNISONE TAB [Concomitant]
     Dosage: UNK
  3. PLAQUENIL [Concomitant]
     Dosage: UNK
  4. IGG [Concomitant]
     Dosage: UNK

REACTIONS (13)
  - COLOUR BLINDNESS [None]
  - MALAISE [None]
  - VISUAL IMPAIRMENT [None]
  - BACK PAIN [None]
  - PAIN IN EXTREMITY [None]
  - TREMOR [None]
  - PANCYTOPENIA [None]
  - CONFUSIONAL STATE [None]
  - MUSCULOSKELETAL CHEST PAIN [None]
  - NEUROPATHY PERIPHERAL [None]
  - NEPHROPATHY [None]
  - DERMATITIS [None]
  - PROTEINURIA [None]
